FAERS Safety Report 8806529 (Version 1)
Quarter: 2012Q4

REPORT INFORMATION
  Report Type: 
  Country: CN (occurrence: CN)
  Receive Date: 20120925
  Receipt Date: 20120925
  Transmission Date: 20130627
  Serious: Yes (Other)
  Sender: FDA-Public Use
  Company Number: CN-BAYER-2012-097683

PATIENT
  Age: 35 Year
  Sex: Female
  Weight: 55 kg

DRUGS (1)
  1. AVELOX [Suspect]
     Indication: UPPER RESPIRATORY TRACT INFECTION
     Dosage: 0.4 g, QD
     Route: 048
     Dates: start: 20110520, end: 20110522

REACTIONS (3)
  - Somnolence [Recovering/Resolving]
  - Dyskinesia [Recovering/Resolving]
  - Tremor [Recovering/Resolving]
